FAERS Safety Report 18685767 (Version 1)
Quarter: 2020Q4

REPORT INFORMATION
  Report Type: Spontaneous
  Country: IN (occurrence: IN)
  Receive Date: 20201231
  Receipt Date: 20201231
  Transmission Date: 20210114
  Serious: Yes (Other)
  Sender: FDA-Public Use
  Company Number: IN-LUPIN LIMITED-2020-11146

PATIENT
  Age: 31 Year
  Sex: Female

DRUGS (2)
  1. PYRAZINAMIDE. [Suspect]
     Active Substance: PYRAZINAMIDE
     Indication: EVIDENCE BASED TREATMENT
     Dosage: UNK
     Route: 065
  2. RIFAMPIN. [Suspect]
     Active Substance: RIFAMPIN
     Indication: EVIDENCE BASED TREATMENT
     Dosage: UNK
     Route: 065

REACTIONS (1)
  - Drug-induced liver injury [Unknown]
